FAERS Safety Report 6779749 (Version 26)
Quarter: 2013Q3

REPORT INFORMATION
  Report Type: Spontaneous
  Country: US (occurrence: US)
  Receive Date: 20081006
  Receipt Date: 20130827
  Transmission Date: 20140515
  Serious: Yes (Hospitalization, Disabling, Other)
  Sender: FDA-Public Use
  Company Number: PHEH2008US08678

PATIENT
  Age: 58 Year
  Sex: Female

DRUGS (86)
  1. ZOMETA [Suspect]
     Dosage: 4 MG, Q3MO
     Route: 042
     Dates: start: 20040119, end: 200707
  2. FOSAMAX [Suspect]
     Indication: OSTEOPOROSIS
  3. LEXAPRO [Concomitant]
  4. MICARDIS [Concomitant]
  5. DITROPAN XL [Concomitant]
  6. VIVELLE-DOT [Concomitant]
  7. SYNTHROID [Concomitant]
  8. PRAVACHOL [Concomitant]
  9. COMBIVENT                               /GFR/ [Concomitant]
  10. SUDAFED [Concomitant]
  11. ARMOUR THYROID [Concomitant]
  12. DOXEPIN [Concomitant]
  13. WELLBUTRIN [Concomitant]
  14. ADVAIR [Concomitant]
  15. LASIX [Concomitant]
  16. AGGRENOX [Concomitant]
  17. TESSALON PERLE [Concomitant]
  18. PREMARIN                                /NEZ/ [Concomitant]
  19. PLAVIX [Concomitant]
  20. FENTANYL [Concomitant]
  21. CIPROFLOXACIN [Concomitant]
     Dates: end: 20090131
  22. LEVSIN [Concomitant]
  23. XANAX [Concomitant]
  24. ALLEGRA [Concomitant]
  25. VICODIN [Concomitant]
  26. ALTACE [Concomitant]
  27. KLONOPIN [Concomitant]
  28. CYMBALTA [Concomitant]
  29. ARICEPT [Concomitant]
  30. ADDERALL [Concomitant]
  31. ASPIRIN ^BAYER^ [Concomitant]
  32. MULTIVITAMIN ^LAPPE^ [Concomitant]
  33. PERCOCET [Concomitant]
  34. CELEBREX [Concomitant]
  35. SOMA [Concomitant]
  36. CORTISONE [Concomitant]
  37. DEPO-MEDROL [Concomitant]
  38. VOLTAREN                           /00372303/ [Concomitant]
  39. BEXTRA [Concomitant]
  40. TERAZOSIN [Concomitant]
  41. DIAZEPAM [Concomitant]
  42. CALCIUM [Concomitant]
  43. PROMETRIUM [Concomitant]
  44. BENADRYL ^ACHE^ [Concomitant]
  45. VANCOMYCIN [Concomitant]
  46. PRILOSEC [Concomitant]
  47. MUCINEX [Concomitant]
  48. SEROQUEL [Concomitant]
  49. DIFLUCAN [Concomitant]
  50. ACTIVASE ^GENENTECH^ [Concomitant]
  51. ZOVIRAX [Concomitant]
  52. DESYREL [Concomitant]
  53. ASTELIN [Concomitant]
  54. SOLU-MEDROL [Concomitant]
  55. ATROPINE SULFATE [Concomitant]
  56. NASONEX [Concomitant]
  57. ESTROGEN NOS [Concomitant]
  58. DARVOCET-N [Concomitant]
  59. SINUTAB ^ACHE^ [Concomitant]
  60. SELENIUM [Concomitant]
  61. VITAMIN C [Concomitant]
  62. NITROGLYCERIN ^A.L.^ [Concomitant]
  63. GLUCOSAMINE [Concomitant]
  64. EFFEXOR [Concomitant]
  65. VITAMIN B6 [Concomitant]
  66. VITAMIN E [Concomitant]
  67. ST. JOHN^S WORT [Concomitant]
  68. PREMPRO [Concomitant]
  69. CLARITIN [Concomitant]
  70. FLOVENT [Concomitant]
  71. SEREVENT [Concomitant]
  72. FLONASE [Concomitant]
  73. ACYCLOVIR [Concomitant]
     Dosage: 400 MG, BID
     Route: 048
  74. FOLIC ACID [Concomitant]
     Dosage: 1 MG, QD
     Route: 048
  75. ESTRADERM [Concomitant]
     Dosage: 1 DF, QW
  76. POTASSIUM CHLORIDE [Concomitant]
     Dosage: 20 MG, QD
     Route: 048
  77. OSCAL [Concomitant]
     Dosage: 500 MG, QD
     Route: 048
  78. SINGULAIR [Concomitant]
     Dosage: 10 MG, QD
     Route: 048
  79. NORVASC [Concomitant]
     Dosage: 10 MG, QD
     Route: 048
  80. LORTAB [Concomitant]
     Dosage: 1 DF, Q4H
     Route: 048
  81. BISACODYL [Concomitant]
  82. LOMOTIL [Concomitant]
  83. OXYCONTIN [Concomitant]
     Dosage: 10 MG, Q12H
     Route: 048
  84. METAMUCIL [Concomitant]
  85. MORPHINE [Concomitant]
  86. DILAUDID [Concomitant]

REACTIONS (105)
  - Chronic obstructive pulmonary disease [Unknown]
  - Pulmonary fibrosis [Unknown]
  - Lung infection [Unknown]
  - Chest pain [Unknown]
  - Empyema [Unknown]
  - Emphysema [Unknown]
  - Lung neoplasm malignant [Unknown]
  - Atelectasis [Unknown]
  - Pulmonary air leakage [Unknown]
  - Pneumothorax [Unknown]
  - Metastases to lymph nodes [Unknown]
  - Dyspnoea exertional [Unknown]
  - Cough [Unknown]
  - Wheezing [Unknown]
  - Osteonecrosis of jaw [Unknown]
  - Pain [Unknown]
  - Injury [Unknown]
  - Anxiety [Unknown]
  - Anhedonia [Unknown]
  - Diverticulum intestinal [Unknown]
  - Lip and/or oral cavity cancer [Unknown]
  - Lip discolouration [Unknown]
  - Neuropathy peripheral [Unknown]
  - Faecal incontinence [Unknown]
  - Tibia fracture [Unknown]
  - Tooth disorder [Unknown]
  - Renal failure acute [Unknown]
  - Cerebrovascular disorder [Unknown]
  - Depression [Unknown]
  - Fall [Unknown]
  - Rib fracture [Unknown]
  - Sinusitis [Unknown]
  - Bronchopleural fistula [Unknown]
  - Pneumothorax [Unknown]
  - Foot fracture [Unknown]
  - Fibula fracture [Unknown]
  - Upper-airway cough syndrome [Unknown]
  - Eye discharge [Unknown]
  - Mastication disorder [Unknown]
  - Osteoradionecrosis [Unknown]
  - Tooth fracture [Unknown]
  - Toothache [Unknown]
  - Cardiomegaly [Unknown]
  - Staphylococcus test [Unknown]
  - Musculoskeletal chest pain [Unknown]
  - Large intestine polyp [Unknown]
  - Rectal polyp [Unknown]
  - Laceration [Unknown]
  - Pleural fibrosis [Unknown]
  - Lymphadenopathy mediastinal [Unknown]
  - Spinal osteoarthritis [Unknown]
  - Aortic arteriosclerosis [Unknown]
  - Transient ischaemic attack [Unknown]
  - Intervertebral disc degeneration [Unknown]
  - Neck pain [Unknown]
  - Headache [Unknown]
  - Thoracic vertebral fracture [Unknown]
  - Intercostal neuralgia [Unknown]
  - Tenderness [Unknown]
  - Allodynia [Unknown]
  - Hyperaesthesia [Unknown]
  - Cancer pain [Unknown]
  - Ankle fracture [Unknown]
  - Varicose vein [Unknown]
  - Cystitis [Unknown]
  - Bunion [Unknown]
  - Wrist fracture [Unknown]
  - Back pain [Unknown]
  - Rash [Unknown]
  - Pyrexia [Unknown]
  - Vision blurred [Unknown]
  - Hypoaesthesia [Unknown]
  - Abscess [Unknown]
  - Urinary incontinence [Unknown]
  - Bacterial disease carrier [Unknown]
  - Insomnia [Unknown]
  - Rotator cuff syndrome [Unknown]
  - Gait disturbance [Unknown]
  - Foot deformity [Unknown]
  - Nausea [Unknown]
  - Diarrhoea [Unknown]
  - Cervical spinal stenosis [Unknown]
  - Cyst [Unknown]
  - Oedema peripheral [Unknown]
  - Retching [Unknown]
  - Injury corneal [Unknown]
  - Somnolence [Unknown]
  - Wound infection staphylococcal [Unknown]
  - Chondromalacia [Unknown]
  - Gastritis [Unknown]
  - Rhinitis [Unknown]
  - Tendon rupture [Unknown]
  - Abdominal pain upper [Unknown]
  - Blood urea nitrogen/creatinine ratio increased [Unknown]
  - Urinary tract infection [Unknown]
  - Myocardial infarction [Unknown]
  - Right ventricular hypertrophy [Unknown]
  - Periarthritis [Unknown]
  - Tendonitis [Unknown]
  - Pseudomonas infection [Unknown]
  - Genital herpes [Unknown]
  - Osteoarthritis [Unknown]
  - Wound [Unknown]
  - Wound infection [Unknown]
  - Scoliosis [Unknown]
